FAERS Safety Report 21823914 (Version 2)
Quarter: 2023Q1

REPORT INFORMATION
  Report Type: Spontaneous
  Country: CH (occurrence: CH)
  Receive Date: 20230105
  Receipt Date: 20230106
  Transmission Date: 20230417
  Serious: Yes (Other)
  Sender: FDA-Public Use
  Company Number: None

PATIENT
  Age: 9 Year
  Sex: Male

DRUGS (13)
  1. APREPITANT [Suspect]
     Active Substance: APREPITANT
     Indication: Prophylaxis of nausea and vomiting
     Dosage: 72-108 MG, FREQUENCY NOT REPORTED
     Route: 048
     Dates: start: 20221013, end: 20221028
  2. IFOSFAMIDE [Suspect]
     Active Substance: IFOSFAMIDE
     Indication: Peripheral T-cell lymphoma unspecified
     Dosage: UNK
     Route: 042
     Dates: start: 20221013, end: 20221016
  3. CARBOPLATIN [Suspect]
     Active Substance: CARBOPLATIN
     Indication: Peripheral T-cell lymphoma unspecified
     Dosage: UNK
     Route: 042
     Dates: start: 20221013, end: 20221016
  4. ETOPOSIDE [Suspect]
     Active Substance: ETOPOSIDE
     Indication: Peripheral T-cell lymphoma unspecified
     Dosage: UNK
     Route: 042
     Dates: start: 20221013, end: 20221016
  5. BRENTUXIMAB [Suspect]
     Active Substance: BRENTUXIMAB
     Indication: Peripheral T-cell lymphoma unspecified
     Route: 042
     Dates: start: 20221013, end: 20221016
  6. SULFAMETHOXAZOLE AND TRIMETHOPRIM [Concomitant]
     Active Substance: SULFAMETHOXAZOLE\TRIMETHOPRIM
     Dosage: UNK
  7. AMLODIPINE [Concomitant]
     Active Substance: AMLODIPINE BESYLATE
     Dosage: 5 MILLIGRAM, FREQUENCY NOT REPORTED
  8. GABAPENTIN [Concomitant]
     Active Substance: GABAPENTIN
     Dosage: 100MG, FREQUENCY NOT REPORTED
  9. SIMETICON [Concomitant]
     Dosage: 2 DOSAGE FORM, FREQUECNY NOT REPORTED
  10. TRAMADOL [Concomitant]
     Active Substance: TRAMADOL
     Dosage: 40 MILLIGRAM, FREQUENCY NOT REPORTED
  11. ENOXAPARIN [Concomitant]
     Active Substance: ENOXAPARIN
     Dosage: 20 MILLIGRAM, FREQUENCY NOT REPORTED
     Route: 058
  12. POTASSIUM [Concomitant]
     Active Substance: POTASSIUM
     Dosage: UNK
  13. MAGNESIUMCITRAT [Concomitant]
     Dosage: UNK

REACTIONS (1)
  - Encephalopathy [Recovered/Resolved]

NARRATIVE: CASE EVENT DATE: 20221015
